FAERS Safety Report 8076678-0 (Version None)
Quarter: 2012Q1

REPORT INFORMATION
  Report Type: 
  Country: None (occurrence: None)
  Receive Date: 20120127
  Receipt Date: 20120119
  Transmission Date: 20120608
  Serious: Yes (Hospitalization)
  Sender: FDA-Public Use
  Company Number: GB-MILLENNIUM PHARMACEUTICALS, INC.-2011-05833

PATIENT

DRUGS (18)
  1. IDARUBICIN HCL [Suspect]
     Indication: MULTIPLE MYELOMA
     Dosage: 10 MG, UNK
     Route: 048
     Dates: start: 20110909, end: 20111105
  2. PLATELETS [Concomitant]
     Indication: PLATELET COUNT DECREASED
     Dosage: 1 UNK, UNK
     Dates: start: 20111011, end: 20111011
  3. PLATELETS [Concomitant]
     Dosage: UNK
     Dates: start: 20111014, end: 20111017
  4. METOCLOPRAMIDE [Concomitant]
     Indication: PROPHYLAXIS OF NAUSEA AND VOMITING
     Dosage: 10 MG, UNK
     Route: 048
     Dates: start: 20110906
  5. VELCADE [Suspect]
     Dosage: 2.2 MG, UNK
     Route: 042
     Dates: start: 20111101, end: 20111101
  6. MELPHALAN HYDROCHLORIDE [Suspect]
     Indication: MULTIPLE MYELOMA
     Dosage: 27 MG, UNK
     Route: 042
     Dates: start: 20110909, end: 20111104
  7. ONDANSETRON [Concomitant]
     Indication: NAUSEA
     Dosage: 8 MG, UNK
     Dates: start: 20111011
  8. LEVOMEPROMAZINE [Concomitant]
     Indication: NAUSEA
     Dosage: 8 MG, UNK
     Dates: start: 20111011
  9. VELCADE [Suspect]
     Dosage: 1.7 MG, UNK
     Route: 042
     Dates: start: 20111104, end: 20111108
  10. VELCADE [Suspect]
     Indication: MULTIPLE MYELOMA
     Dosage: 2.3 MG, UNK
     Route: 042
     Dates: start: 20110906, end: 20111014
  11. NEUPOGEN [Concomitant]
     Dosage: 300 MG, UNK
     Route: 058
     Dates: start: 20111007, end: 20111010
  12. NEUPOGEN [Concomitant]
     Indication: PROPHYLAXIS
     Dosage: 30 MG, UNK
     Route: 058
     Dates: start: 20110920, end: 20110927
  13. RED BLOOD CELLS [Concomitant]
     Indication: ANAEMIA
     Dosage: 2 UNK, UNK
     Dates: start: 20111011, end: 20111011
  14. AMITRIPTILINA [Concomitant]
     Indication: NEUROPATHY PERIPHERAL
     Dosage: 25 MG, UNK
     Route: 048
     Dates: start: 20110924
  15. FLUCLOXACILLIN [Concomitant]
     Indication: LOCALISED INFECTION
     Dosage: 1000 MG, UNK
     Dates: start: 20111108, end: 20111111
  16. DIHYDROCODEINE BITARTRATE INJ [Concomitant]
     Indication: BACK PAIN
     Dosage: 30 MG, UNK
     Dates: start: 20110924
  17. CAPSAICIN [Concomitant]
     Indication: BACK PAIN
     Dosage: UNK
     Dates: start: 20111004
  18. NEUPOGEN [Concomitant]
     Dosage: 300 MG, UNK
     Route: 058
     Dates: start: 20111025, end: 20111031

REACTIONS (1)
  - INFECTION [None]
